FAERS Safety Report 8837767 (Version 1)
Quarter: 2012Q4

REPORT INFORMATION
  Report Type: 
  Country: US (occurrence: US)
  Receive Date: 20121012
  Receipt Date: 20121012
  Transmission Date: 20130627
  Serious: Yes (Other)
  Sender: FDA-Public Use
  Company Number: US-009507513-2011SP001283

PATIENT

DRUGS (1)
  1. NUVARING [Suspect]
     Indication: CONTRACEPTION
     Dates: start: 20081209, end: 20090224

REACTIONS (5)
  - Deep vein thrombosis [Unknown]
  - Papilloma viral infection [Unknown]
  - Vaginal discharge [Unknown]
  - Cervical dysplasia [Unknown]
  - Vaginal disorder [Unknown]
